FAERS Safety Report 6400828-2 (Version None)
Quarter: 2009Q4

REPORT INFORMATION
  Report Type: 
  Country: None (occurrence: None)
  Receive Date: 20091008
  Receipt Date: 20090702
  Transmission Date: 20100525
  Serious: Yes (Other)
  Sender: FDA-Public Use
  Company Number: 83314

PATIENT
  Sex: Male
  Weight: 80 kg

DRUGS (1)
  1. CHLOROPROCAINE HCL [Suspect]
     Indication: ARTHROSCOPY
     Dosage: 2ML AT SPINAL LUMBAR L 3-4
     Dates: start: 20090702

REACTIONS (1)
  - DRUG INEFFECTIVE [None]
